FAERS Safety Report 24150882 (Version 1)
Quarter: 2024Q3

REPORT INFORMATION
  Report Type: Spontaneous
  Country: US (occurrence: None)
  Receive Date: 20240729
  Receipt Date: 20240729
  Transmission Date: 20241017
  Serious: Yes (Death)
  Sender: Public
  Company Number: None

PATIENT
  Sex: Male
  Weight: 91 kg

DRUGS (1)
  1. IMDELLTRA [Suspect]
     Active Substance: TARLATAMAB-DLLE
     Indication: Small cell lung cancer
     Dosage: OTHER FREQUENCY : PER PI;?
     Route: 042
     Dates: start: 20240726, end: 20240726

REACTIONS (3)
  - Restlessness [None]
  - Dyspnoea [None]
  - Refusal of treatment by relative [None]
